FAERS Safety Report 9620223 (Version 1)
Quarter: 2013Q4

REPORT INFORMATION
  Report Type: Spontaneous
  Country: US (occurrence: US)
  Receive Date: 20131014
  Receipt Date: 20131014
  Transmission Date: 20140711
  Serious: No
  Sender: FDA-Public Use
  Company Number: US-ALLERGAN-1312419US

PATIENT
  Age: 52 Year
  Sex: Female

DRUGS (9)
  1. ALPHAGAN P [Suspect]
     Indication: GLAUCOMA
     Dosage: 2 GTT, TID
     Route: 047
     Dates: start: 201307
  2. PREDNISOLONE ACETATE, 1.0% [Concomitant]
     Indication: PRODUCT USED FOR UNKNOWN INDICATION
     Route: 047
  3. TRAVATAN Z [Concomitant]
     Indication: GLAUCOMA
  4. PHENOBARBITAL [Concomitant]
     Indication: CONVULSION
  5. NEURONTIN [Concomitant]
     Indication: CONVULSION
  6. SYNTHROID [Concomitant]
     Indication: THYROID DISORDER
     Dosage: 88 ?G, UNK
  7. SYNTHROID [Concomitant]
     Dosage: 100 ?G, BI-WEEKLY
  8. VITAMIN D                          /00107901/ [Concomitant]
     Indication: PRODUCT USED FOR UNKNOWN INDICATION
     Dosage: 50000 UNITS, Q WEEK
  9. FAMOTIDINE [Concomitant]
     Indication: PRODUCT USED FOR UNKNOWN INDICATION
     Dosage: 40 MG, BID
     Route: 048

REACTIONS (8)
  - Pain in extremity [Not Recovered/Not Resolved]
  - Pain in extremity [Not Recovered/Not Resolved]
  - Pain [Not Recovered/Not Resolved]
  - Pain in extremity [Unknown]
  - Muscular weakness [Unknown]
  - Gait disturbance [Unknown]
  - Eyelid ptosis [Not Recovered/Not Resolved]
  - Photosensitivity reaction [Unknown]
